FAERS Safety Report 10238437 (Version 44)
Quarter: 2022Q2

REPORT INFORMATION
  Report Type: Report from Study
  Country: CA (occurrence: CA)
  Receive Date: 20140616
  Receipt Date: 20220524
  Transmission Date: 20220721
  Serious: Yes (Hospitalization, Disabling, Other)
  Sender: FDA-Public Use
  Company Number: PHHY2014CA073310

PATIENT
  Age: 71 Year
  Sex: Male

DRUGS (9)
  1. SANDOSTATIN LAR DEPOT [Suspect]
     Active Substance: OCTREOTIDE ACETATE
     Indication: Acromegaly
     Dosage: 30 MG, EVERY 4 WEEKS
     Route: 030
     Dates: start: 20091008
  2. SANDOSTATIN LAR DEPOT [Suspect]
     Active Substance: OCTREOTIDE ACETATE
     Dosage: 30 MG (EVERY 3 WEEKS)
     Route: 030
     Dates: start: 20091008, end: 20200306
  3. SANDOSTATIN LAR DEPOT [Suspect]
     Active Substance: OCTREOTIDE ACETATE
     Dosage: 30 MG, (EVERY 3 WEEKS)
     Route: 030
     Dates: start: 20190111
  4. SANDOSTATIN LAR DEPOT [Suspect]
     Active Substance: OCTREOTIDE ACETATE
     Dosage: 30 MG, (EVERY 3 WEEKS)
     Route: 030
     Dates: start: 20190315
  5. SANDOSTATIN LAR DEPOT [Suspect]
     Active Substance: OCTREOTIDE ACETATE
     Dosage: 30 MG, (EVERY 3 WEEKS)
     Route: 030
  6. SANDOSTATIN LAR DEPOT [Suspect]
     Active Substance: OCTREOTIDE ACETATE
     Dosage: UNK
     Route: 030
     Dates: start: 20191009
  7. SANDOSTATIN LAR DEPOT [Suspect]
     Active Substance: OCTREOTIDE ACETATE
     Dosage: 20 MG, QMO (EVERY 4 WEEK)
     Route: 030
  8. AMLODIPINE [Concomitant]
     Active Substance: AMLODIPINE BESYLATE
     Indication: Hypertension
     Dosage: 1 DF, QD
     Route: 048
  9. NITROGLYCERIN [Concomitant]
     Active Substance: NITROGLYCERIN
     Indication: Product used for unknown indication
     Dosage: 1 DOSAGE FORM, OTHER
     Route: 065
     Dates: start: 2020

REACTIONS (32)
  - Abnormal behaviour [Unknown]
  - Intervertebral disc protrusion [Unknown]
  - Pain [Unknown]
  - Gait disturbance [Unknown]
  - Blindness unilateral [Unknown]
  - Eye disorder [Unknown]
  - Hypertension [Unknown]
  - Mental disorder [Unknown]
  - Eye swelling [Unknown]
  - Peripheral swelling [Not Recovered/Not Resolved]
  - Obesity [Unknown]
  - Overweight [Unknown]
  - Cardiac disorder [Unknown]
  - Hypoaesthesia [Unknown]
  - Limb discomfort [Unknown]
  - Sleep apnoea syndrome [Not Recovered/Not Resolved]
  - Oxygen saturation decreased [Unknown]
  - Body temperature decreased [Unknown]
  - Skin ulcer [Not Recovered/Not Resolved]
  - Fall [Unknown]
  - Head injury [Unknown]
  - Depression [Unknown]
  - Insomnia [Unknown]
  - Neck injury [Unknown]
  - Neck pain [Unknown]
  - Blood pressure increased [Unknown]
  - COVID-19 [Recovering/Resolving]
  - Cough [Unknown]
  - Pyrexia [Unknown]
  - Needle issue [Unknown]
  - Inappropriate schedule of product administration [Unknown]
  - Product dose omission issue [Unknown]

NARRATIVE: CASE EVENT DATE: 20161014
